FAERS Safety Report 5741593-1 (Version None)
Quarter: 2008Q2

REPORT INFORMATION
  Report Type: 
  Country: None (occurrence: None)
  Receive Date: 20080519
  Receipt Date: 20070314
  Transmission Date: 20081010
  Serious: No
  Sender: FDA-Public Use
  Company Number: US-BAYER-US-2007-009445

PATIENT
  Age: 67 Year
  Sex: Female

DRUGS (1)
  1. ULTRAVIST 300 [Suspect]
     Dosage: UNIT DOSE: 150 ML
     Dates: start: 20070314, end: 20070314

REACTIONS (4)
  - DYSPNOEA [None]
  - PRURITUS [None]
  - SNEEZING [None]
  - THROAT IRRITATION [None]
